FAERS Safety Report 9586241 (Version 1)
Quarter: 2013Q4

REPORT INFORMATION
  Report Type: Spontaneous
  Country: US (occurrence: None)
  Receive Date: 20131002
  Receipt Date: 20131002
  Transmission Date: 20140711
  Serious: No
  Sender: FDA-Public Use
  Company Number: None

PATIENT
  Age: 33 Year
  Sex: Female
  Weight: 2.63 kg

DRUGS (1)
  1. MIRENA BAYER [Suspect]

REACTIONS (5)
  - Groin pain [None]
  - Arthralgia [None]
  - Activities of daily living impaired [None]
  - Muscle strain [None]
  - Discomfort [None]
